FAERS Safety Report 10159105 (Version 2)
Quarter: 2014Q2

REPORT INFORMATION
  Report Type: Report from Study
  Country: CA (occurrence: CA)
  Receive Date: 20140508
  Receipt Date: 20140508
  Transmission Date: 20141212
  Serious: Yes (Other)
  Sender: FDA-Public Use
  Company Number: CA-BRISTOL-MYERS SQUIBB COMPANY-20095709

PATIENT
  Age: 83 Year
  Sex: Female
  Weight: 67 kg

DRUGS (4)
  1. ORENCIA [Suspect]
     Indication: RHEUMATOID ARTHRITIS
     Dosage: 1DF=500 UNIT NOS; MAR16
     Dates: start: 20130122
  2. PREDNISONE [Concomitant]
  3. PLAQUENIL [Concomitant]
  4. ARAVA [Concomitant]

REACTIONS (4)
  - Cataract [Unknown]
  - Blood pressure increased [Unknown]
  - Weight increased [Unknown]
  - Oedema peripheral [Unknown]
